FAERS Safety Report 11316088 (Version 1)
Quarter: 2015Q3

REPORT INFORMATION
  Report Type: Spontaneous
  Country: KE (occurrence: None)
  Receive Date: 20150724
  Receipt Date: 20150724
  Transmission Date: 20151125
  Serious: Yes (Other)
  Sender: FDA-Public Use
  Company Number: 2015HINCT0590

PATIENT
  Sex: Female

DRUGS (3)
  1. NEVIRAPINE. [Suspect]
     Active Substance: NEVIRAPINE
     Indication: HIV INFECTION
     Dates: start: 20131014
  2. LAMIVUDINE+ABACAVIR [Suspect]
     Active Substance: ABACAVIR\LAMIVUDINE
     Indication: HIV INFECTION
     Dates: start: 20131014
  3. EFAVIRENZ+LAMIVUDINE+TENOFOVIR (EFAVIRENZ, LAMIVUDINE, TENOFIVIR) [Suspect]
     Active Substance: EFAVIRENZ\LAMIVUDINE\TENOFOVIR
     Indication: HIV INFECTION
     Dates: start: 20131029

REACTIONS (4)
  - Pregnancy [None]
  - Abortion spontaneous [None]
  - Maternal exposure during pregnancy [None]
  - Contraindicated drug administered [None]
